FAERS Safety Report 8217703-3 (Version None)
Quarter: 2012Q1

REPORT INFORMATION
  Report Type: 
  Country: None (occurrence: None)
  Receive Date: 20120315
  Receipt Date: 20120305
  Transmission Date: 20120608
  Serious: Yes (Other)
  Sender: FDA-Public Use
  Company Number: 2012P1009138

PATIENT
  Age: 5 Year
  Sex: Male
  Weight: 19 kg

DRUGS (4)
  1. LAMOTRIGINE [Suspect]
     Indication: MYOCLONUS
     Dosage: 5 MG; QD; 25 MG; QD; 12.5 MG; QD;
  2. LAMOTRIGINE [Suspect]
     Indication: MYOCLONUS
     Dosage: 5 MG; QD; 25 MG; QD; 12.5 MG; QD;
  3. LAMOTRIGINE [Suspect]
     Indication: MYOCLONUS
     Dosage: 5 MG; QD; 25 MG; QD; 12.5 MG; QD;
  4. VALPROIC ACID [Concomitant]

REACTIONS (3)
  - CONDITION AGGRAVATED [None]
  - MYOCLONUS [None]
  - FALL [None]
